FAERS Safety Report 9298245 (Version 1)
Quarter: 2013Q2

REPORT INFORMATION
  Report Type: Spontaneous
  Country: GB (occurrence: GB)
  Receive Date: 20130520
  Receipt Date: 20130520
  Transmission Date: 20140414
  Serious: Yes (Other)
  Sender: FDA-Public Use
  Company Number: GB-JNJFOC-20130505513

PATIENT
  Age: 22 Year
  Sex: Female
  Weight: 56 kg

DRUGS (6)
  1. KETOCONAZOLE [Suspect]
     Indication: PRODUCT USED FOR UNKNOWN INDICATION
     Route: 061
     Dates: start: 20130423, end: 20130424
  2. KETOCONAZOLE [Suspect]
     Indication: PRODUCT USED FOR UNKNOWN INDICATION
     Route: 061
     Dates: start: 20130429
  3. MICROGYNON [Concomitant]
     Route: 065
     Dates: start: 20121213
  4. NITROFURANTOIN [Concomitant]
     Route: 065
     Dates: start: 20130220, end: 20130223
  5. PARACETAMOL [Concomitant]
     Route: 065
     Dates: start: 20130220, end: 20130304
  6. TRAMADOL [Concomitant]
     Dates: start: 20130220, end: 20130320

REACTIONS (1)
  - Chemical burn of skin [Recovering/Resolving]
